FAERS Safety Report 7029493-0 (Version None)
Quarter: 2010Q4

REPORT INFORMATION
  Report Type: 
  Country: None (occurrence: None)
  Receive Date: 20101005
  Receipt Date: 20100927
  Transmission Date: 20110411
  Serious: Yes (Death, Hospitalization, Other)
  Sender: FDA-Public Use
  Company Number: US-AMGEN-QUU422498

PATIENT
  Sex: Male
  Weight: 103.5 kg

DRUGS (19)
  1. NPLATE [Suspect]
     Indication: IDIOPATHIC THROMBOCYTOPENIC PURPURA
     Dates: start: 20091006, end: 20091011
  2. IMMU-G [Concomitant]
     Dates: start: 20090413
  3. RITUXIMAB [Concomitant]
     Dates: start: 20030601
  4. CYCLOPHOSPHAMIDE [Concomitant]
     Dates: start: 20070301
  5. ACYCLOVIR SODIUM [Concomitant]
     Route: 048
  6. ALLOPURINOL [Concomitant]
     Route: 048
  7. AMBIEN [Concomitant]
     Route: 048
  8. AMOXICILLIN [Concomitant]
     Route: 048
  9. AVELOX [Concomitant]
     Route: 048
  10. BUPROPION HYDROCHLORIDE [Concomitant]
     Route: 048
  11. FLOMAX [Concomitant]
     Route: 048
  12. FUROSEMIDE [Concomitant]
     Route: 048
  13. OXYCODONE [Concomitant]
     Route: 048
  14. LEVOTHYROXINE SODIUM [Concomitant]
     Route: 048
  15. PRILOSEC [Concomitant]
     Route: 048
  16. PROPRANOLOL [Concomitant]
     Route: 048
  17. VENTOLIN [Concomitant]
     Route: 055
  18. SOLU-MEDROL [Concomitant]
  19. VICODIN [Concomitant]

REACTIONS (12)
  - ABDOMINAL PAIN [None]
  - ACUTE RESPIRATORY FAILURE [None]
  - ASTHENIA [None]
  - CHRONIC LYMPHOCYTIC LEUKAEMIA [None]
  - COAGULOPATHY [None]
  - INSOMNIA [None]
  - MALNUTRITION [None]
  - MENTAL STATUS CHANGES [None]
  - NO THERAPEUTIC RESPONSE [None]
  - PNEUMONIA [None]
  - SEPSIS [None]
  - THROMBOCYTOPENIA [None]
